FAERS Safety Report 25511970 (Version 1)
Quarter: 2025Q3

REPORT INFORMATION
  Report Type: Spontaneous
  Country: BR (occurrence: BR)
  Receive Date: 20250703
  Receipt Date: 20250703
  Transmission Date: 20251020
  Serious: Yes (Death)
  Sender: BEIGENE
  Company Number: BR-BEIGENE-BGN-2025-010833

PATIENT

DRUGS (1)
  1. BRUKINSA [Suspect]
     Active Substance: ZANUBRUTINIB
     Indication: Mantle cell lymphoma refractory
     Dosage: UNK, BID

REACTIONS (1)
  - Shock [Fatal]
